FAERS Safety Report 9421420 (Version 1)
Quarter: 2013Q3

REPORT INFORMATION
  Report Type: Spontaneous
  Country: US (occurrence: US)
  Receive Date: 20130725
  Receipt Date: 20130725
  Transmission Date: 20140515
  Serious: Yes (Death)
  Sender: FDA-Public Use
  Company Number: US-JNJFOC-20130713343

PATIENT
  Age: 67 Year
  Sex: Male

DRUGS (3)
  1. IMODIUM [Suspect]
     Route: 065
  2. IMODIUM [Suspect]
     Indication: PRODUCT USED FOR UNKNOWN INDICATION
     Route: 065
  3. MORPHINE [Concomitant]
     Indication: PAIN
     Route: 065

REACTIONS (1)
  - Death [Fatal]
